FAERS Safety Report 5097304-9 (Version None)
Quarter: 2006Q3

REPORT INFORMATION
  Report Type: 
  Country: None (occurrence: None)
  Receive Date: 20060901
  Receipt Date: 20060823
  Transmission Date: 20061208
  Serious: Yes (Death, Life-Threatening)
  Sender: FDA-Public Use
  Company Number: 06H-101-0309692-00

PATIENT
  Age: 63 Year
  Sex: Male

DRUGS (20)
  1. LEVOPHED [Suspect]
     Indication: DRUG USE FOR UNKNOWN INDICATION
     Dosage: CONTINUOUS, INTRAVENOUS
     Route: 042
     Dates: start: 20060615, end: 20060630
  2. TIFACOGIN SOLUTION FOR INFUSION [Concomitant]
  3. PLACEBO [Concomitant]
  4. AZITHROMYCIN [Concomitant]
  5. HYDROCORTISONE [Concomitant]
  6. FUROSEMIDE [Concomitant]
  7. SUCRALFATE [Concomitant]
  8. CALCIUM GLUCONATE [Concomitant]
  9. AUGMENTIN '125' [Concomitant]
  10. RANITIDINE [Concomitant]
  11. DOPAMINE [Concomitant]
  12. MORPHINE [Concomitant]
  13. MIDAZOLAM HCL [Concomitant]
  14. ACTRAPID (INSULIN HUMAN) [Concomitant]
  15. DOBUTAMINE HCL [Concomitant]
  16. NAHCO3 (SODIUM BICARBONATE) [Concomitant]
  17. PROPOFOL [Concomitant]
  18. POTASSIUM CHLORIDE [Concomitant]
  19. TRANEXAMIC ACID [Concomitant]
  20. KALIMATE (CALCIUM POLYSTYRENE SULFONATE) [Concomitant]

REACTIONS (10)
  - ACIDOSIS [None]
  - ACINETOBACTER INFECTION [None]
  - BRONCHOPNEUMONIA [None]
  - DRY GANGRENE [None]
  - ELECTROMECHANICAL DISSOCIATION [None]
  - ENTEROBACTER INFECTION [None]
  - HYPERKALAEMIA [None]
  - REFUSAL OF TREATMENT BY RELATIVE [None]
  - RENAL FAILURE ACUTE [None]
  - SEPSIS [None]
